FAERS Safety Report 12953878 (Version 1)
Quarter: 2016Q4

REPORT INFORMATION
  Report Type: Spontaneous
  Country: IT (occurrence: IT)
  Receive Date: 20161118
  Receipt Date: 20161118
  Transmission Date: 20170207
  Serious: Yes (Hospitalization)
  Sender: FDA-Public Use
  Company Number: IT-ROCHE-1856328

PATIENT
  Age: 64 Year
  Sex: Female

DRUGS (4)
  1. SEROQUEL [Suspect]
     Active Substance: QUETIAPINE FUMARATE
     Indication: BIPOLAR DISORDER
     Route: 048
     Dates: start: 20161107, end: 20161107
  2. TAVOR (LORAZEPAM) [Suspect]
     Active Substance: LORAZEPAM
     Indication: ANXIETY
     Dosage: ^1 MG TABLETS^ 20 TABLETS
     Route: 048
     Dates: start: 20161107, end: 20161107
  3. XANAX [Suspect]
     Active Substance: ALPRAZOLAM
     Indication: ANXIETY
     Dosage: ^1 MG TABLETS^ 20 TABLETS
     Route: 048
     Dates: start: 20161107, end: 20161107
  4. RIVOTRIL [Suspect]
     Active Substance: CLONAZEPAM
     Indication: ANXIETY
     Dosage: ^2.5 MG/ML ORAL DROPS, SOLUTION^
     Route: 048
     Dates: start: 20161107, end: 20161107

REACTIONS (2)
  - Overdose [Unknown]
  - Bradyphrenia [Recovered/Resolved]

NARRATIVE: CASE EVENT DATE: 20161107
